FAERS Safety Report 16285623 (Version 1)
Quarter: 2019Q2

REPORT INFORMATION
  Report Type: Report from Study
  Country: CO (occurrence: CO)
  Receive Date: 20190508
  Receipt Date: 20190508
  Transmission Date: 20190711
  Serious: Yes (Hospitalization)
  Sender: FDA-Public Use
  Company Number: CO-ASTELLAS-2019US019436

PATIENT
  Age: 60 Year
  Sex: Female

DRUGS (1)
  1. TACROLIMUS. [Suspect]
     Active Substance: TACROLIMUS
     Indication: RENAL TRANSPLANT
     Dosage: 6 MG, ONCE DAILY (2 CAPSULES OF 3 MG EVERY 24 HOURS)
     Route: 048
     Dates: start: 20100415

REACTIONS (4)
  - Angina pectoris [Recovering/Resolving]
  - Pulmonary mass [Not Recovered/Not Resolved]
  - Asphyxia [Recovering/Resolving]
  - Intracardiac mass [Not Recovered/Not Resolved]

NARRATIVE: CASE EVENT DATE: 20190327
